FAERS Safety Report 9559849 (Version 1)
Quarter: 2013Q3

REPORT INFORMATION
  Report Type: Spontaneous
  Country: US (occurrence: None)
  Receive Date: 20130909
  Receipt Date: 20130909
  Transmission Date: 20140515
  Serious: Yes (Other)
  Sender: FDA-Public Use
  Company Number: 379189

PATIENT
  Age: 52 Year
  Sex: Male
  Weight: 81.2 kg

DRUGS (9)
  1. VICTOZA [Suspect]
     Indication: TYPE 2 DIABETES MELLITUS
     Route: 058
     Dates: start: 201301, end: 201304
  2. LEVEMIR FLEXPEN (INSULIN DETERMIR) [Concomitant]
  3. METFORMIN (METFORMIN) [Concomitant]
  4. PRANDIN (REPAGLINIDE) TABLET, 2.0MG [Concomitant]
  5. BYSTOLIC (NEBIVOLOL HYDROCHLORIDE) [Concomitant]
  6. EXFORGE (AMLODIPINE BESILATE, VALSARTAN [Concomitant]
  7. PRAVASTATIN (PRAVASTATIN) [Concomitant]
  8. ASPIRIN (ACETYLSALICYLIC ACID) [Concomitant]
  9. JANUVIA (SITAGLIPTIN PHOSPHATE) [Concomitant]

REACTIONS (2)
  - Pancreatitis [None]
  - Dizziness [None]
